FAERS Safety Report 5507314-2 (Version None)
Quarter: 2007Q4

REPORT INFORMATION
  Report Type: 
  Country: None (occurrence: None)
  Receive Date: 20071102
  Receipt Date: 20071019
  Transmission Date: 20080405
  Serious: Yes (Other)
  Sender: FDA-Public Use
  Company Number: 2007BM000153

PATIENT
  Age: 52 Year
  Sex: Male

DRUGS (9)
  1. PREDNISONE [Suspect]
     Indication: PROPHYLAXIS AGAINST GRAFT VERSUS HOST DISEASE
     Dosage: 2 MG/KG; QD; 0.2 MG/KG; QD
     Dates: start: 20060101
  2. PREDNISONE [Suspect]
     Indication: PROPHYLAXIS AGAINST GRAFT VERSUS HOST DISEASE
     Dosage: 2 MG/KG; QD; 0.2 MG/KG; QD
     Dates: start: 20060801
  3. ORAPRED [Suspect]
  4. TRIMETHOPRIM [Concomitant]
  5. SULFAMETHOXAZOLE [Concomitant]
  6. METHOTREXATE [Concomitant]
  7. CYCLOPHOSPHAMIDE [Concomitant]
  8. TACROLIMUS [Concomitant]
  9. MYCOPHENOLATE MOFETIL [Concomitant]

REACTIONS (9)
  - AMNESIA [None]
  - CEREBRAL TOXOPLASMOSIS [None]
  - COMA [None]
  - DIARRHOEA [None]
  - DISEASE PROGRESSION [None]
  - DISORIENTATION [None]
  - DRUG RESISTANCE [None]
  - GRAFT VERSUS HOST DISEASE [None]
  - SOMNOLENCE [None]
